FAERS Safety Report 9798134 (Version 2)
Quarter: 2014Q1

REPORT INFORMATION
  Report Type: Spontaneous
  Country: US (occurrence: None)
  Receive Date: 20140102
  Receipt Date: 20140122
  Transmission Date: 20141002
  Serious: Yes (Death)
  Sender: FDA-Public Use
  Company Number: UTC-042287

PATIENT
  Age: 55 Year
  Sex: Male
  Weight: 88.18 kg

DRUGS (3)
  1. TYVASO [Suspect]
     Indication: PULMONARY ARTERIAL HYPERTENSION
     Dosage: 18 TO 54 MCG (4 IN 1 D), INHALATION
     Route: 055
     Dates: start: 20131111
  2. REVATIO (SILDENAFIL CITRATE) [Concomitant]
  3. WARFARIN [Concomitant]

REACTIONS (2)
  - Death [None]
  - Pulmonary hypertension [None]
